FAERS Safety Report 8762937 (Version 1)
Quarter: 2012Q4

REPORT INFORMATION
  Report Type: Spontaneous
  Country: US (occurrence: None)
  Receive Date: 20120830
  Receipt Date: 20120830
  Transmission Date: 20130627
  Serious: Yes (Disabling, Other)
  Sender: FDA-Public Use
  Company Number: None

PATIENT
  Age: 35 Year
  Sex: Male
  Weight: 72.58 kg

DRUGS (1)
  1. PROPECIA [Suspect]
     Indication: MALE PATTERN BALDNESS
     Route: 048
     Dates: start: 20010101, end: 20030106

REACTIONS (8)
  - Erectile dysfunction [None]
  - Libido decreased [None]
  - Depression [None]
  - Prostatic pain [None]
  - Infertility male [None]
  - Penile size reduced [None]
  - Disturbance in attention [None]
  - Feeling abnormal [None]
